FAERS Safety Report 8323410-9 (Version None)
Quarter: 2012Q2

REPORT INFORMATION
  Report Type: 
  Country: None (occurrence: None)
  Receive Date: 20120430
  Receipt Date: 20120424
  Transmission Date: 20120825
  Serious: Yes (Hospitalization)
  Sender: FDA-Public Use
  Company Number: AU-ELI_LILLY_AND_COMPANY-AU201204007968

PATIENT
  Sex: Male

DRUGS (13)
  1. BYETTA [Suspect]
     Dosage: UNK, UNKNOWN
     Dates: start: 20120329
  2. FELODIPINE [Concomitant]
     Dosage: 2.5 MG, QD
  3. LINAGLIPTIN [Concomitant]
     Dosage: 5 MG, QD
  4. METFORMIN HCL [Concomitant]
     Dosage: 425 MG, BID
  5. ASPIRIN [Concomitant]
     Dosage: 100 MG, QD
  6. PROGOUT [Concomitant]
     Dosage: 100 MG, QD
  7. MICARDIS [Concomitant]
     Dosage: 40 MG, QD
  8. UREMIDE [Concomitant]
     Dosage: 40 MG, UNKNOWN
  9. CRESTOR [Concomitant]
     Dosage: 40 MG, QD
  10. WARFARIN SODIUM [Concomitant]
     Dosage: UNK, UNKNOWN
  11. LANTUS [Concomitant]
     Dosage: UNK, UNKNOWN
  12. GLICLAZIDE [Concomitant]
     Dosage: 120 MG, QD
  13. MONODUR [Concomitant]
     Dosage: 60 MG, QD

REACTIONS (9)
  - CHEST PAIN [None]
  - VOMITING [None]
  - CHEST DISCOMFORT [None]
  - NAUSEA [None]
  - INTERNATIONAL NORMALISED RATIO INCREASED [None]
  - OFF LABEL USE [None]
  - HYPOGLYCAEMIA [None]
  - RENAL FAILURE ACUTE [None]
  - DRUG INTOLERANCE [None]
